FAERS Safety Report 6337086-3 (Version None)
Quarter: 2009Q3

REPORT INFORMATION
  Report Type: 
  Country: None (occurrence: None)
  Receive Date: 20090831
  Receipt Date: 20090827
  Transmission Date: 20100115
  Serious: Yes (Death)
  Sender: FDA-Public Use
  Company Number: 2009SP022362

PATIENT
  Age: 36 Year
  Sex: Female

DRUGS (2)
  1. TEMODAR [Suspect]
     Indication: CONNECTIVE TISSUE DISORDER
     Dosage: PO
     Route: 048
  2. TEMODAR [Suspect]
     Indication: NEOPLASM MALIGNANT
     Dosage: PO
     Route: 048

REACTIONS (1)
  - DEATH [None]
